FAERS Safety Report 10490504 (Version 1)
Quarter: 2014Q4

REPORT INFORMATION
  Report Type: Spontaneous
  Country: US (occurrence: US)
  Receive Date: 20141002
  Receipt Date: 20141002
  Transmission Date: 20150528
  Serious: Yes (Other)
  Sender: FDA-Public Use
  Company Number: US-PFIZER INC-2014268433

PATIENT
  Sex: Female

DRUGS (2)
  1. DILANTIN [Suspect]
     Active Substance: PHENYTOIN
     Dosage: UNK
  2. LIPITOR [Suspect]
     Active Substance: ATORVASTATIN CALCIUM
     Dosage: UNK

REACTIONS (10)
  - Renal cyst [Unknown]
  - Arthropathy [Unknown]
  - Osteoporosis [Unknown]
  - Urinary incontinence [Unknown]
  - Cerebral cyst [Unknown]
  - Scoliosis [Unknown]
  - Uterine cyst [Unknown]
  - Bladder cyst [Unknown]
  - Seizure [Unknown]
  - Glycosylated haemoglobin decreased [Unknown]
